FAERS Safety Report 24135879 (Version 1)
Quarter: 2024Q3

REPORT INFORMATION
  Report Type: Spontaneous
  Country: US (occurrence: US)
  Receive Date: 20240725
  Receipt Date: 20240725
  Transmission Date: 20241017
  Serious: No
  Sender: STRIDES
  Company Number: US-STRIDES ARCOLAB LIMITED-2024SP001021

PATIENT
  Sex: Female

DRUGS (1)
  1. OSELTAMIVIR [Suspect]
     Active Substance: OSELTAMIVIR
     Indication: Product used for unknown indication
     Dosage: 01 CAPSULE BY MOUTH TWICE A DAY
     Route: 048
     Dates: start: 20231228, end: 20231228

REACTIONS (2)
  - Muscle spasms [Unknown]
  - Drug ineffective [Unknown]
